FAERS Safety Report 7889726-5 (Version None)
Quarter: 2011Q4

REPORT INFORMATION
  Report Type: 
  Country: None (occurrence: None)
  Receive Date: 20111103
  Receipt Date: 20111026
  Transmission Date: 20120403
  Serious: Yes (Hospitalization)
  Sender: FDA-Public Use
  Company Number: CA-ABBOTT-11P-028-0868831-00

PATIENT
  Sex: Female
  Weight: 90.8 kg

DRUGS (12)
  1. MULTI-VITAMINS [Concomitant]
     Indication: ROUTINE HEALTH MAINTENANCE
     Dates: start: 20010101
  2. FUROSEMIDE [Concomitant]
     Indication: FLUID RETENTION
  3. VITAMIN B-12 [Concomitant]
     Indication: PRODUCT USED FOR UNKNOWN INDICATION
     Route: 030
  4. FENOFIBRATE MCOAT [Concomitant]
     Indication: BLOOD CHOLESTEROL INCREASED
     Dates: start: 20010101
  5. ASPIRIN [Concomitant]
     Indication: CARDIAC DISORDER
  6. METFORMIN HCL [Concomitant]
     Indication: DIABETES MELLITUS
  7. PLAVIX [Concomitant]
     Indication: ANTICOAGULANT THERAPY
  8. ATENOLOL [Concomitant]
     Indication: PRODUCT USED FOR UNKNOWN INDICATION
  9. PANTOPRAZOLE [Concomitant]
     Indication: GASTROOESOPHAGEAL REFLUX DISEASE
  10. HUMIRA [Suspect]
     Indication: CROHN'S DISEASE
     Route: 058
     Dates: start: 20080912, end: 20111001
  11. PERINDOPRIL ERBUMINE [Concomitant]
     Indication: HYPERTENSION
  12. APO-AMLODIPINE [Concomitant]
     Indication: CARDIAC DISORDER
     Route: 048

REACTIONS (6)
  - PAIN [None]
  - BLOOD GLUCOSE INCREASED [None]
  - CROHN'S DISEASE [None]
  - INTESTINAL OBSTRUCTION [None]
  - VOMITING [None]
  - WEIGHT DECREASED [None]
